FAERS Safety Report 21967604 (Version 1)
Quarter: 2023Q1

REPORT INFORMATION
  Report Type: Spontaneous
  Country: US (occurrence: None)
  Receive Date: 20230206
  Receipt Date: 20230206
  Transmission Date: 20230418
  Serious: Yes (Other)
  Sender: FDA-Public Use
  Company Number: None

PATIENT
  Age: 26 Year
  Sex: Female

DRUGS (1)
  1. CYANOCOBALAMIN\SEMAGLUTIDE [Suspect]
     Active Substance: CYANOCOBALAMIN\SEMAGLUTIDE
     Indication: Weight control
     Dosage: 0.5 ML WEEKLY SUBCUTANEOUS?
     Route: 058
     Dates: start: 20230201, end: 20230203

REACTIONS (2)
  - Nausea [None]
  - Vomiting [None]

NARRATIVE: CASE EVENT DATE: 20230201
